FAERS Safety Report 7715920-X (Version None)
Quarter: 2011Q3

REPORT INFORMATION
  Report Type: 
  Country: None (occurrence: None)
  Receive Date: 20110829
  Receipt Date: 20110820
  Transmission Date: 20111222
  Serious: Yes (Hospitalization, Other)
  Sender: FDA-Public Use
  Company Number: US-JNJFOC-20110709521

PATIENT
  Sex: Male

DRUGS (2)
  1. INVEGA SUSTENNA [Suspect]
     Route: 030
     Dates: start: 20110603
  2. INVEGA SUSTENNA [Suspect]
     Indication: PRODUCT USED FOR UNKNOWN INDICATION
     Route: 030
     Dates: start: 20110610

REACTIONS (4)
  - DRUG DOSE OMISSION [None]
  - DEPRESSION [None]
  - PSYCHOTIC DISORDER [None]
  - SCHIZOPHRENIA [None]
